FAERS Safety Report 9096231 (Version 1)
Quarter: 2013Q1

REPORT INFORMATION
  Report Type: Spontaneous
  Country: DK (occurrence: FR)
  Receive Date: 20130207
  Receipt Date: 20130207
  Transmission Date: 20140127
  Serious: Yes (Life-Threatening)
  Sender: FDA-Public Use
  Company Number: FR-FRI-1000042451

PATIENT
  Age: 96 Year
  Sex: Female

DRUGS (1)
  1. ESCITALOPRAM [Suspect]
     Dosage: 15 MG
     Route: 048
     Dates: start: 20110919

REACTIONS (3)
  - Hyponatraemia [Recovering/Resolving]
  - Cardiac failure [Recovering/Resolving]
  - Respiratory distress [Recovering/Resolving]
